FAERS Safety Report 16119670 (Version 1)
Quarter: 2019Q1

REPORT INFORMATION
  Report Type: Spontaneous
  Country: US (occurrence: US)
  Receive Date: 20190326
  Receipt Date: 20190326
  Transmission Date: 20190418
  Serious: Yes (Other)
  Sender: FDA-Public Use
  Company Number: US-ASTRAZENECA-2019SE44785

PATIENT
  Sex: Female

DRUGS (8)
  1. PRILOSEC [Suspect]
     Active Substance: OMEPRAZOLE MAGNESIUM
     Route: 048
  2. ZETIA [Concomitant]
     Active Substance: EZETIMIBE
  3. NEXIUM [Suspect]
     Active Substance: ESOMEPRAZOLE MAGNESIUM
     Route: 048
  4. METOPROLOL TARTRATE. [Concomitant]
     Active Substance: METOPROLOL TARTRATE
  5. METAMUCIL [Concomitant]
     Active Substance: PLANTAGO SEED
  6. LASIX [Concomitant]
     Active Substance: FUROSEMIDE
  7. FENTANYL. [Concomitant]
     Active Substance: FENTANYL
  8. LOMOTIL [Concomitant]
     Active Substance: ATROPINE SULFATE\DIPHENOXYLATE HYDROCHLORIDE

REACTIONS (1)
  - Chronic kidney disease [Unknown]
